FAERS Safety Report 9395837 (Version 1)
Quarter: 2013Q3

REPORT INFORMATION
  Report Type: Spontaneous
  Country: US (occurrence: US)
  Receive Date: 20130711
  Receipt Date: 20130711
  Transmission Date: 20140515
  Serious: Yes (Hospitalization)
  Sender: FDA-Public Use
  Company Number: US-ASTRAZENECA-2013SE50997

PATIENT
  Age: 61 Year
  Sex: Female
  Weight: 72.6 kg

DRUGS (16)
  1. ATENOLOL [Suspect]
     Indication: ARRHYTHMIA
     Route: 048
     Dates: start: 1997
  2. ATENOLOL [Suspect]
     Indication: HYPERTENSION
     Route: 048
     Dates: start: 1997
  3. SEROQUEL [Suspect]
     Indication: SLEEP DISORDER
     Route: 048
     Dates: start: 2011, end: 2011
  4. SEROQUEL [Suspect]
     Indication: ANXIETY
     Route: 048
     Dates: start: 2011, end: 2011
  5. SEROQUEL [Suspect]
     Indication: SLEEP DISORDER
     Route: 048
     Dates: start: 2011, end: 2011
  6. SEROQUEL [Suspect]
     Indication: ANXIETY
     Route: 048
     Dates: start: 2011, end: 2011
  7. SEROQUEL [Suspect]
     Indication: SLEEP DISORDER
     Route: 048
     Dates: start: 2011
  8. SEROQUEL [Suspect]
     Indication: ANXIETY
     Route: 048
     Dates: start: 2011
  9. SEROQUEL [Suspect]
     Indication: SLEEP DISORDER
     Route: 048
     Dates: start: 2012
  10. SEROQUEL [Suspect]
     Indication: ANXIETY
     Route: 048
     Dates: start: 2012
  11. TRILEPTAL [Concomitant]
     Indication: DEPRESSION
     Route: 048
     Dates: start: 2010, end: 201304
  12. KLONOPIN [Concomitant]
     Indication: ANXIETY
     Route: 048
     Dates: start: 1995
  13. SYNTHROID [Concomitant]
     Indication: HYPOTHYROIDISM
     Dosage: 175 DAILY
     Route: 048
     Dates: start: 1996
  14. LASIX [Concomitant]
     Indication: FLUID RETENTION
     Route: 048
     Dates: start: 1995
  15. LASIX [Concomitant]
     Indication: HYPERTENSION
     Route: 048
     Dates: start: 1995
  16. DEPAKOTE [Concomitant]
     Dates: start: 2007

REACTIONS (14)
  - Tachycardia [Unknown]
  - Weight increased [Unknown]
  - Sedation [Unknown]
  - Chest discomfort [Unknown]
  - Disturbance in attention [Unknown]
  - Mood altered [Unknown]
  - Heart rate increased [Unknown]
  - Anxiety [Unknown]
  - Hypomania [Unknown]
  - Depression [Unknown]
  - Somnolence [Unknown]
  - Feeling abnormal [Unknown]
  - Off label use [Unknown]
  - Intentional drug misuse [Unknown]
